FAERS Safety Report 5163092-0 (Version None)
Quarter: 2006Q4

REPORT INFORMATION
  Report Type: 
  Country: None (occurrence: None)
  Receive Date: 20061201
  Receipt Date: 20060202
  Transmission Date: 20070319
  Serious: Yes (Other)
  Sender: FDA-Public Use
  Company Number: GR-ABBOTT-06P-066-0324148-00

PATIENT
  Sex: Female

DRUGS (2)
  1. KLARICID 500 [Suspect]
     Indication: BRONCHITIS
     Route: 048
     Dates: start: 20060112, end: 20060122
  2. BUTAMIRATE CITRATE [Concomitant]
     Indication: BRONCHITIS
     Route: 048
     Dates: start: 20060112, end: 20060122

REACTIONS (3)
  - ABORTION INDUCED [None]
  - DRUG EXPOSURE DURING PREGNANCY [None]
  - PREGNANCY [None]
